FAERS Safety Report 5202443-5 (Version None)
Quarter: 2006Q4

REPORT INFORMATION
  Report Type: 
  Country: None (occurrence: None)
  Receive Date: 20061010
  Receipt Date: 20050819
  Transmission Date: 20070319
  Serious: Yes (Life-Threatening)
  Sender: FDA-Public Use
  Company Number: 2005P1000573

PATIENT
  Age: 72 Year
  Sex: Male

DRUGS (2)
  1. RETEVASE [Suspect]
     Indication: ACUTE MYOCARDIAL INFARCTION
     Dosage: IV
     Route: 042
     Dates: start: 20050704, end: 20050704
  2. ABCIXIMAB (ABCIXIMAB) [Suspect]
     Indication: DRUG USE FOR UNKNOWN INDICATION
     Dosage: IV
     Route: 042
     Dates: start: 20050704

REACTIONS (1)
  - VENTRICULAR FIBRILLATION [None]
